FAERS Safety Report 11824666 (Version 1)
Quarter: 2015Q4

REPORT INFORMATION
  Report Type: Spontaneous
  Country: FR (occurrence: FR)
  Receive Date: 20151210
  Receipt Date: 20151210
  Transmission Date: 20160305
  Serious: Yes (Hospitalization, Other)
  Sender: FDA-Public Use
  Company Number: FR-BAXTER-2015BAX065931

PATIENT
  Age: 0 Year
  Sex: Male
  Weight: 2.44 kg

DRUGS (12)
  1. FARMORUBICINE [Suspect]
     Active Substance: EPIRUBICIN HYDROCHLORIDE
     Route: 064
     Dates: start: 20150625, end: 201508
  2. PACLITAXEL. [Suspect]
     Active Substance: PACLITAXEL
     Dosage: DAY 1, DAY 8, DAY 15
     Route: 064
     Dates: start: 20151027, end: 20151027
  3. ENDOXAN 1000 MG, POUDRE POUR SOLUTION INJECTABLE [Suspect]
     Active Substance: CYCLOPHOSPHAMIDE
     Indication: FOETAL EXPOSURE TIMING UNSPECIFIED
     Route: 064
     Dates: start: 20150605, end: 201508
  4. FARMORUBICINE [Suspect]
     Active Substance: EPIRUBICIN HYDROCHLORIDE
     Route: 064
     Dates: start: 20150717, end: 201508
  5. FARMORUBICINE [Suspect]
     Active Substance: EPIRUBICIN HYDROCHLORIDE
     Route: 064
     Dates: start: 201508, end: 201508
  6. PACLITAXEL. [Suspect]
     Active Substance: PACLITAXEL
     Dosage: DAY 1, DAY 8, DAY 15
     Route: 064
     Dates: start: 20151009, end: 20151027
  7. ENDOXAN 1000 MG, POUDRE POUR SOLUTION INJECTABLE [Suspect]
     Active Substance: CYCLOPHOSPHAMIDE
     Route: 064
     Dates: start: 20150625, end: 201508
  8. PACLITAXEL. [Suspect]
     Active Substance: PACLITAXEL
     Indication: FOETAL EXPOSURE TIMING UNSPECIFIED
     Dosage: DAY 1, DAY 8, DAY 15
     Route: 064
     Dates: start: 20150828, end: 20151027
  9. FARMORUBICINE [Suspect]
     Active Substance: EPIRUBICIN HYDROCHLORIDE
     Indication: FOETAL EXPOSURE TIMING UNSPECIFIED
     Route: 064
     Dates: start: 20150605, end: 201508
  10. PACLITAXEL. [Suspect]
     Active Substance: PACLITAXEL
     Dosage: DAY 1, DAY 8, DAY 15
     Route: 064
     Dates: start: 20150918, end: 20151027
  11. ENDOXAN 1000 MG, POUDRE POUR SOLUTION INJECTABLE [Suspect]
     Active Substance: CYCLOPHOSPHAMIDE
     Route: 064
     Dates: start: 20150717, end: 201508
  12. ENDOXAN 1000 MG, POUDRE POUR SOLUTION INJECTABLE [Suspect]
     Active Substance: CYCLOPHOSPHAMIDE
     Route: 064
     Dates: start: 201508, end: 201508

REACTIONS (3)
  - Premature delivery [Recovered/Resolved]
  - Hypotonia neonatal [Unknown]
  - Foetal exposure during pregnancy [Recovered/Resolved]

NARRATIVE: CASE EVENT DATE: 20150605
